FAERS Safety Report 17418192 (Version 2)
Quarter: 2020Q3

REPORT INFORMATION
  Report Type: Spontaneous
  Country: FR (occurrence: FR)
  Receive Date: 20200213
  Receipt Date: 20200820
  Transmission Date: 20201102
  Serious: Yes (Other)
  Sender: FDA-Public Use
  Company Number: FR-AUROBINDO-AUR-APL-2019-069111

PATIENT
  Age: 51 Year
  Sex: Male
  Weight: 80 kg

DRUGS (6)
  1. FENOFIBRATE. [Suspect]
     Active Substance: FENOFIBRATE
     Indication: DYSLIPIDAEMIA
     Dosage: 300 MILLIGRAM, ONCE A DAY
     Route: 048
  2. DULOXETINE. [Suspect]
     Active Substance: DULOXETINE
     Indication: DEPRESSION
     Dosage: 60 MILLIGRAM, ONCE A DAY
     Route: 048
     Dates: start: 20171122, end: 2019
  3. UROREC [Suspect]
     Active Substance: SILODOSIN
     Indication: MICTURITION DISORDER
     Dosage: UNK
     Route: 048
     Dates: start: 201902
  4. DIAZEPAM. [Suspect]
     Active Substance: DIAZEPAM
     Indication: DEPRESSION
     Dosage: 5 MILLIGRAM, ONCE A DAY
     Route: 048
     Dates: end: 201904
  5. PAROXETINE. [Suspect]
     Active Substance: PAROXETINE
     Indication: DEPRESSION
     Dosage: 20 MILLIGRAM, ONCE A DAY
     Route: 048
     Dates: start: 2017, end: 20171122
  6. AOTAL [Concomitant]
     Active Substance: ACAMPROSATE CALCIUM
     Indication: ALCOHOL USE DISORDER
     Dosage: 6 DOSAGE FORM, ONCE A DAY
     Route: 048
     Dates: start: 201711, end: 201801

REACTIONS (3)
  - Retrograde ejaculation [Not Recovered/Not Resolved]
  - Erectile dysfunction [Not Recovered/Not Resolved]
  - Libido disorder [Recovered/Resolved]

NARRATIVE: CASE EVENT DATE: 2018
